FAERS Safety Report 23289442 (Version 1)
Quarter: 2023Q4

REPORT INFORMATION
  Report Type: Other
  Country: JP (occurrence: JP)
  Receive Date: 20231212
  Receipt Date: 20231212
  Transmission Date: 20240110
  Serious: Yes (Hospitalization, Other)
  Sender: FDA-Public Use
  Company Number: JP-Alcami_Corporation-USA-POI0581202300006

PATIENT
  Age: 78 Year
  Sex: Female

DRUGS (2)
  1. AZASAN [Suspect]
     Active Substance: AZATHIOPRINE
     Indication: Pemphigus
     Route: 048
     Dates: start: 2023, end: 2023
  2. PREDNISOLONE [Concomitant]
     Active Substance: PREDNISOLONE
     Indication: Pemphigus
     Dates: start: 2023

REACTIONS (1)
  - Cystitis haemorrhagic [Recovered/Resolved]

NARRATIVE: CASE EVENT DATE: 20230101
